FAERS Safety Report 19482093 (Version 2)
Quarter: 2021Q3

REPORT INFORMATION
  Report Type: Report from Study
  Country: GR (occurrence: GR)
  Receive Date: 20210701
  Receipt Date: 20210707
  Transmission Date: 20211014
  Serious: Yes (Hospitalization)
  Sender: FDA-Public Use
  Company Number: GR-ROCHE-2860434

PATIENT
  Age: 84 Year
  Sex: Male
  Weight: 80 kg

DRUGS (7)
  1. COPALIA [Concomitant]
     Active Substance: AMLODIPINE BESYLATE\VALSARTAN
  2. XARELTO [Concomitant]
     Active Substance: RIVAROXABAN
     Dates: start: 202105
  3. ADENURIC [Concomitant]
     Active Substance: FEBUXOSTAT
  4. CABOZANTINIB [Suspect]
     Active Substance: CABOZANTINIB
     Indication: RENAL CELL CARCINOMA
     Dosage: DATE OF LAST DOSE PRIOR TO ADVERSE EVENT/SPECIAL SITUATION 22/JUN/2021
     Route: 048
     Dates: start: 20210528, end: 20210622
  5. HYDROFLUX [Concomitant]
  6. ATEZOLIZUMAB. [Suspect]
     Active Substance: ATEZOLIZUMAB
     Indication: RENAL CELL CARCINOMA
     Dosage: DATE OF LAST DOSE PRIOR TO ADVERSE EVENT/SPECIAL SITUATION 18/JUN/2021
     Route: 041
     Dates: start: 20210528
  7. LOBIVON [Concomitant]
     Active Substance: NEBIVOLOL HYDROCHLORIDE

REACTIONS (1)
  - Soft tissue infection [Recovered/Resolved]

NARRATIVE: CASE EVENT DATE: 20210622
